FAERS Safety Report 4760800-5 (Version None)
Quarter: 2005Q3

REPORT INFORMATION
  Report Type: 
  Country: None (occurrence: None)
  Receive Date: 20050901
  Receipt Date: 20050824
  Transmission Date: 20060218
  Serious: Yes (Other)
  Sender: FDA-Public Use
  Company Number: 2005119228

PATIENT
  Age: 29 Month
  Sex: Male
  Weight: 12.2471 kg

DRUGS (1)
  1. BENADRYL ALLERGY (DIPHENYDRAMINE) (DIPHENYDRAMINE) [Suspect]
     Indication: RASH
     Dosage: 1 TEASPOONFUL TWICE, ORAL
     Route: 048
     Dates: start: 20050701, end: 20050822

REACTIONS (1)
  - SYNCOPE [None]
